FAERS Safety Report 12855474 (Version 3)
Quarter: 2017Q3

REPORT INFORMATION
  Report Type: Spontaneous
  Country: US (occurrence: US)
  Receive Date: 20161017
  Receipt Date: 20170925
  Transmission Date: 20171127
  Serious: Yes (Hospitalization, Other)
  Sender: FDA-Public Use
  Company Number: US-BAUSCH-BL-2016-024978

PATIENT
  Age: 46 Year
  Sex: Male

DRUGS (2)
  1. XIFAXAN [Suspect]
     Active Substance: RIFAXIMIN
     Indication: HEPATIC FAILURE
     Dosage: TAKING HALF A TABLET DAILY
     Route: 065
     Dates: start: 20130530
  2. XIFAXAN [Suspect]
     Active Substance: RIFAXIMIN
     Indication: HEPATIC ENCEPHALOPATHY

REACTIONS (10)
  - Central venous catheterisation [Recovering/Resolving]
  - Multiple organ dysfunction syndrome [Recovering/Resolving]
  - Anaemia [Unknown]
  - Yersinia infection [Unknown]
  - Device related infection [Recovering/Resolving]
  - Road traffic accident [Unknown]
  - Treatment noncompliance [Unknown]
  - Clostridium difficile infection [Unknown]
  - Probiotic therapy [Unknown]
  - Unevaluable event [Unknown]

NARRATIVE: CASE EVENT DATE: 2015
